FAERS Safety Report 19080176 (Version 1)
Quarter: 2021Q1

REPORT INFORMATION
  Report Type: Spontaneous
  Country: US (occurrence: US)
  Receive Date: 20210331
  Receipt Date: 20210331
  Transmission Date: 20210420
  Serious: Yes (Life-Threatening, Other)
  Sender: FDA-Public Use
  Company Number: US-MYLANLABS-2021M1019068

PATIENT
  Sex: Female

DRUGS (15)
  1. EPINEPHRINE. [Suspect]
     Active Substance: EPINEPHRINE
     Indication: ANAPHYLACTIC REACTION
     Dosage: UNK
  2. ZOFRAN [Concomitant]
     Active Substance: ONDANSETRON HYDROCHLORIDE
     Indication: NAUSEA
     Dosage: 8 MILLIGRAM, EVERY 4 TO 6 HOURS AS NEEDED, BEEN TAKING FOR 13 YEARS
  3. ALPRAZOLAM. [Concomitant]
     Active Substance: ALPRAZOLAM
     Dosage: 1 MILLIGRAM, 4 TABLETS BUT, ONLY TAKES 2 TABLETS
  4. SOLU?MEDROL [Concomitant]
     Active Substance: METHYLPREDNISOLONE SODIUM SUCCINATE
     Indication: ANAPHYLACTIC REACTION
     Dosage: UNK
  5. BENADRYL [Concomitant]
     Active Substance: DIPHENHYDRAMINE HYDROCHLORIDE
     Indication: ANAPHYLACTIC REACTION
     Dosage: UNK
  6. DICYCLOMINE                        /00068601/ [Concomitant]
     Active Substance: DICYCLOMINE HYDROCHLORIDE
     Indication: GASTROINTESTINAL PAIN
     Dosage: 10 MILLIGRAM BEFORE MEALS
  7. COLESEVELAM HYDROCHLORIDE. [Concomitant]
     Active Substance: COLESEVELAM HYDROCHLORIDE
     Indication: SUPPLEMENTATION THERAPY
     Dosage: 625 MILLIGRAM, BID
  8. GATTEX [Concomitant]
     Active Substance: TEDUGLUTIDE\WATER
     Dosage: 2ML OF 5ML BOTTLE DAILY
     Route: 058
  9. SUCRALFATE. [Concomitant]
     Active Substance: SUCRALFATE
     Indication: PROPHYLAXIS OF NAUSEA AND VOMITING
     Dosage: 1G PER 10 ML LIQUID2 TSP 4 TIMES DAY
  10. EPINEPHRINE. [Suspect]
     Active Substance: EPINEPHRINE
     Indication: ANAPHYLACTIC REACTION
     Dosage: UNK
  11. FLUDROCORTISONE [Concomitant]
     Active Substance: FLUDROCORTISONE
     Indication: ADRENAL INSUFFICIENCY
     Dosage: 3 DOSAGE FORM, IN MORNING
  12. GABAPENTIN. [Concomitant]
     Active Substance: GABAPENTIN
     Dosage: UNK
  13. MIDODRINE [Concomitant]
     Active Substance: MIDODRINE
     Indication: ORTHOSTATIC HYPOTENSION
     Dosage: 5 MILLIGRAM, TID
  14. DECADRON [Concomitant]
     Active Substance: DEXAMETHASONE
     Indication: ANAPHYLACTIC REACTION
     Dosage: UNK
  15. PREDNISONE. [Concomitant]
     Active Substance: PREDNISONE
     Dosage: 40 MILLIGRAM, BID

REACTIONS (3)
  - Device failure [Unknown]
  - Gait disturbance [Recovering/Resolving]
  - Asterixis [Recovering/Resolving]
